FAERS Safety Report 13878983 (Version 1)
Quarter: 2017Q3

REPORT INFORMATION
  Report Type: Spontaneous
  Country: US (occurrence: US)
  Receive Date: 20170817
  Receipt Date: 20170817
  Transmission Date: 20171127
  Serious: Yes (Hospitalization, Other)
  Sender: FDA-Public Use
  Company Number: US-ELI_LILLY_AND_COMPANY-US201708003936

PATIENT
  Age: 81 Year
  Sex: Female

DRUGS (2)
  1. HUMALOG MIX50/50 [Suspect]
     Active Substance: INSULIN LISPRO
     Indication: PRODUCT USED FOR UNKNOWN INDICATION
     Dosage: UNK UNK, UNKNOWN
     Route: 065
  2. HUMALOG MIX50/50 [Suspect]
     Active Substance: INSULIN LISPRO
     Dosage: UNK UNK, UNKNOWN
     Route: 065

REACTIONS (11)
  - Blood glucose decreased [Unknown]
  - Headache [Unknown]
  - Anaemia [Unknown]
  - Confusional state [Unknown]
  - Blood glucose increased [Unknown]
  - Cardiac disorder [Unknown]
  - Decreased appetite [Unknown]
  - Hypertension [Unknown]
  - Incorrect drug administration duration [Unknown]
  - Hypophagia [Unknown]
  - General physical health deterioration [Unknown]

NARRATIVE: CASE EVENT DATE: 20170808
